FAERS Safety Report 15722751 (Version 1)
Quarter: 2018Q4

REPORT INFORMATION
  Report Type: Spontaneous
  Country: US (occurrence: US)
  Receive Date: 20181214
  Receipt Date: 20181214
  Transmission Date: 20190205
  Serious: No
  Sender: FDA-Public Use
  Company Number: US-ADAPT PHARMA INC-2018ADP00065

PATIENT
  Age: 83 Year
  Sex: Female
  Weight: 56.69 kg

DRUGS (13)
  1. TRAMADOL. [Concomitant]
     Active Substance: TRAMADOL
     Dosage: UNK, UNK
  2. ESZOPICLONE. [Concomitant]
     Active Substance: ESZOPICLONE
  3. METOPROLOL. [Concomitant]
     Active Substance: METOPROLOL
  4. UNSPECIFIED OPIOIDS [Concomitant]
     Dosage: UNK, UNK (REGULARLY)
  5. ASPIRIN. [Concomitant]
     Active Substance: ASPIRIN
  6. PROAIR HFA [Concomitant]
     Active Substance: ALBUTEROL SULFATE
  7. AMLODIPINE BESYLATE. [Concomitant]
     Active Substance: AMLODIPINE BESYLATE
  8. ONDANSETRON [Concomitant]
     Active Substance: ONDANSETRON
  9. TYLENOL [Concomitant]
     Active Substance: ACETAMINOPHEN
  10. LEVOTHYROXINE. [Concomitant]
     Active Substance: LEVOTHYROXINE
  11. FUROSEMIDE. [Concomitant]
     Active Substance: FUROSEMIDE
  12. NARCAN [Suspect]
     Active Substance: NALOXONE HYDROCHLORIDE
     Dosage: 4 MG, ONCE
     Route: 045
     Dates: start: 20180914, end: 20180914
  13. LYRICA [Concomitant]
     Active Substance: PREGABALIN

REACTIONS (4)
  - Unintentional use for unapproved indication [Recovered/Resolved]
  - Asthenia [Recovered/Resolved]
  - Feeling abnormal [Recovered/Resolved]
  - Gait disturbance [Recovered/Resolved]

NARRATIVE: CASE EVENT DATE: 20180914
